FAERS Safety Report 12386763 (Version 3)
Quarter: 2016Q3

REPORT INFORMATION
  Report Type: Report from Study
  Country: DE (occurrence: CO)
  Receive Date: 20160519
  Receipt Date: 20160727
  Transmission Date: 20161109
  Serious: Yes (Death, Hospitalization, Other)
  Sender: FDA-Public Use
  Company Number: DE-ACTELION-A-US2016-136518

PATIENT
  Age: 70 Year
  Sex: Female

DRUGS (3)
  1. VENTAVIS [Suspect]
     Active Substance: ILOPROST
     Dosage: UNK, 5/DAY
     Route: 055
     Dates: start: 20160507
  2. VENTAVIS [Suspect]
     Active Substance: ILOPROST
     Indication: PULMONARY HYPERTENSION
     Dosage: 5 MCG, 6-9X/DAY
     Route: 055
     Dates: start: 20150511
  3. VENTAVIS [Suspect]
     Active Substance: ILOPROST
     Dosage: UNK, 6/DAY
     Route: 055
     Dates: start: 20160519, end: 201607

REACTIONS (4)
  - Renal cancer [Unknown]
  - Product use issue [Recovered/Resolved]
  - Condition aggravated [Not Recovered/Not Resolved]
  - Death [Fatal]

NARRATIVE: CASE EVENT DATE: 20160311
